FAERS Safety Report 9393517 (Version 1)
Quarter: 2013Q3

REPORT INFORMATION
  Report Type: Spontaneous
  Country: US (occurrence: None)
  Receive Date: 20130709
  Receipt Date: 20130709
  Transmission Date: 20140515
  Serious: Yes (Hospitalization)
  Sender: FDA-Public Use
  Company Number: None

PATIENT
  Age: 81 Year
  Sex: Male
  Weight: 84.8 kg

DRUGS (2)
  1. XARELTO [Suspect]
     Indication: ATRIAL FIBRILLATION
     Route: 048
     Dates: start: 20130601, end: 20130625
  2. XARELTO [Suspect]
     Route: 048
     Dates: start: 20130601, end: 20130625

REACTIONS (3)
  - Hypotension [None]
  - Anaemia [None]
  - Open reduction of fracture [None]
